FAERS Safety Report 9526149 (Version 1)
Quarter: 2013Q3

REPORT INFORMATION
  Report Type: Report from Study
  Country: DE (occurrence: TR)
  Receive Date: 20130916
  Receipt Date: 20130916
  Transmission Date: 20140515
  Serious: Yes (Death)
  Sender: FDA-Public Use
  Company Number: DE-ACTELION-A-NJ2013-88513

PATIENT
  Age: 17 Year
  Sex: Male

DRUGS (1)
  1. VENTAVIS [Suspect]
     Indication: PRODUCT USED FOR UNKNOWN INDICATION
     Dosage: 6/DAY
     Route: 055
     Dates: start: 20121001

REACTIONS (2)
  - Upper respiratory tract infection [Fatal]
  - General physical health deterioration [Fatal]
